FAERS Safety Report 14583204 (Version 3)
Quarter: 2018Q3

REPORT INFORMATION
  Report Type: Report from Study
  Country: MX (occurrence: MX)
  Receive Date: 20180228
  Receipt Date: 20180709
  Transmission Date: 20181010
  Serious: Yes (Other)
  Sender: FDA-Public Use
  Company Number: MX-UCBSA-2018007793

PATIENT
  Age: 0 Year
  Sex: Female
  Weight: 2 kg

DRUGS (7)
  1. CERTOLIZUMAB PEGOL [Suspect]
     Active Substance: CERTOLIZUMAB PEGOL
     Dosage: UNK
     Route: 063
     Dates: start: 201802
  2. ENOXAPARINA [Concomitant]
     Active Substance: ENOXAPARIN
     Indication: RHEUMATOID ARTHRITIS
  3. METICORTEN [Concomitant]
     Active Substance: PREDNISONE
     Indication: SJOGREN^S SYNDROME
  4. ENOXAPARINA [Concomitant]
     Active Substance: ENOXAPARIN
     Indication: SJOGREN^S SYNDROME
  5. METICORTEN [Concomitant]
     Active Substance: PREDNISONE
     Indication: RHEUMATOID ARTHRITIS
  6. CERTOLIZUMAB PEGOL [Suspect]
     Active Substance: CERTOLIZUMAB PEGOL
     Indication: RHEUMATOID ARTHRITIS
     Dosage: UNK UNK, EV 15 DAYS
     Route: 064
     Dates: start: 2017, end: 2017
  7. PROGESTERONA [Concomitant]
     Indication: PRODUCT USED FOR UNKNOWN INDICATION

REACTIONS (3)
  - Foetal exposure during pregnancy [Unknown]
  - Premature baby [Unknown]
  - Exposure via breast milk [Unknown]

NARRATIVE: CASE EVENT DATE: 2017
